FAERS Safety Report 14940171 (Version 2)
Quarter: 2018Q2

REPORT INFORMATION
  Report Type: Spontaneous
  Country: US (occurrence: US)
  Receive Date: 20180525
  Receipt Date: 20180627
  Transmission Date: 20180711
  Serious: No
  Sender: FDA-Public Use
  Company Number: US-GLAXOSMITHKLINE-US2018091658

PATIENT
  Sex: Female

DRUGS (16)
  1. ATIVAN [Concomitant]
     Active Substance: LORAZEPAM
  2. ASPIRIN (BABY) [Concomitant]
     Active Substance: ASPIRIN
  3. ACIDOPHILUS [Concomitant]
     Active Substance: LACTOBACILLUS ACIDOPHILUS
  4. GINGER ROOT [Concomitant]
     Active Substance: GINGER
  5. METAMUCIL [Concomitant]
     Active Substance: PLANTAGO SEED
  6. CITRACAL D [Concomitant]
  7. ADVIL [Concomitant]
     Active Substance: IBUPROFEN
  8. AMITRIPTYLINE [Concomitant]
     Active Substance: AMITRIPTYLINE
  9. MECLIZINE [Concomitant]
     Active Substance: MECLIZINE HYDROCHLORIDE
  10. VENTOLIN HFA [Suspect]
     Active Substance: ALBUTEROL SULFATE
     Indication: CHRONIC OBSTRUCTIVE PULMONARY DISEASE
     Dosage: 1 PUFF(S), TID
     Route: 055
     Dates: start: 20180425
  11. VENTOLIN HFA [Suspect]
     Active Substance: ALBUTEROL SULFATE
     Indication: BRONCHITIS
  12. GINKGO BILOBA [Concomitant]
     Active Substance: GINKGO
  13. MAGNESIUM [Concomitant]
     Active Substance: MAGNESIUM
  14. METHOCARBAMOL. [Concomitant]
     Active Substance: METHOCARBAMOL
  15. OMEGA 3 [Concomitant]
     Active Substance: OMEGA-3 FATTY ACIDS
  16. TURMERIC (CURCUMIN) [Concomitant]

REACTIONS (3)
  - Overdose [Unknown]
  - Product quality issue [Unknown]
  - Tongue discomfort [Not Recovered/Not Resolved]
